FAERS Safety Report 12186689 (Version 1)
Quarter: 2016Q1

REPORT INFORMATION
  Report Type: Spontaneous
  Country: US (occurrence: None)
  Receive Date: 20160316
  Receipt Date: 20160316
  Transmission Date: 20160526
  Serious: No
  Sender: FDA-Public Use
  Company Number: None

PATIENT
  Age: 59 Year
  Sex: Female
  Weight: 87.54 kg

DRUGS (1)
  1. CARMEX [Suspect]
     Active Substance: CAMPHOR\MENTHOL\PHENOL\POTASSIUM ALUM\SALICYLIC ACID
     Indication: LIP DRY
     Dates: start: 20160312, end: 20160313

REACTIONS (4)
  - Lip pain [None]
  - Lip swelling [None]
  - Paraesthesia oral [None]
  - Cheilitis [None]

NARRATIVE: CASE EVENT DATE: 20160313
